FAERS Safety Report 20387653 (Version 4)
Quarter: 2022Q1

REPORT INFORMATION
  Report Type: Spontaneous
  Country: CA (occurrence: CA)
  Receive Date: 20220127
  Receipt Date: 20220315
  Transmission Date: 20220424
  Serious: Yes (Death, Other)
  Sender: FDA-Public Use
  Company Number: CA-CELLTRION INC.-2021CA018158

PATIENT

DRUGS (3)
  1. INFLECTRA [Suspect]
     Active Substance: INFLIXIMAB-DYYB
     Indication: Colitis ulcerative
     Dosage: 900 MG, 0, 2 AND 6, THEN EVERY 8 WEEKS
     Route: 042
     Dates: start: 20210723
  2. INFLECTRA [Suspect]
     Active Substance: INFLIXIMAB-DYYB
     Dosage: 900 MG, 0, 2 AND 6, THEN EVERY 8 WEEKS
     Route: 042
     Dates: start: 20211029
  3. INFLECTRA [Suspect]
     Active Substance: INFLIXIMAB-DYYB
     Dosage: 900 MG EVERY 6 WEEK
     Route: 042
     Dates: start: 20211208

REACTIONS (7)
  - Death [Fatal]
  - Lung neoplasm malignant [Unknown]
  - Hepatic cancer [Unknown]
  - Colon cancer [Unknown]
  - Condition aggravated [Unknown]
  - Asthenia [Unknown]
  - Off label use [Unknown]

NARRATIVE: CASE EVENT DATE: 20211208
